FAERS Safety Report 4602715-9 (Version None)
Quarter: 2005Q1

REPORT INFORMATION
  Report Type: 
  Country: None (occurrence: None)
  Receive Date: 20050307
  Receipt Date: 20050301
  Transmission Date: 20050727
  Serious: Yes (Hospitalization)
  Sender: FDA-Public Use
  Company Number: 2005027118

PATIENT
  Sex: Male

DRUGS (1)
  1. TAHOR         (ATORVASTATIN) [Suspect]
     Indication: ILL-DEFINED DISORDER
     Dosage: 10 MG
     Dates: start: 20050101, end: 20050101

REACTIONS (4)
  - CACHEXIA [None]
  - DERMATOMYOSITIS [None]
  - MYALGIA [None]
  - SKIN DISORDER [None]
